FAERS Safety Report 6628744-1 (Version None)
Quarter: 2010Q1

REPORT INFORMATION
  Report Type: 
  Country: None (occurrence: None)
  Receive Date: 20100225
  Receipt Date: 20090801
  Transmission Date: 20100710
  Serious: Yes (Other)
  Sender: FDA-Public Use
  Company Number: 647871

PATIENT
  Age: 15 Year
  Sex: Male
  Weight: 90.7 kg

DRUGS (2)
  1. ACCUTANE [Suspect]
     Indication: ACNE
     Dosage: 40 MG DAILY
     Dates: start: 20021007, end: 20040407
  2. TRIAZ CLEANSER (BENZOYL PEROXIDE) [Concomitant]

REACTIONS (6)
  - APHTHOUS STOMATITIS [None]
  - BLOOD CHOLESTEROL INCREASED [None]
  - BLOOD TRIGLYCERIDES INCREASED [None]
  - COLITIS ULCERATIVE [None]
  - CROHN'S DISEASE [None]
  - INFLAMMATORY BOWEL DISEASE [None]
